FAERS Safety Report 5803714-1 (Version None)
Quarter: 2008Q3

REPORT INFORMATION
  Report Type: 
  Country: None (occurrence: None)
  Receive Date: 20080708
  Receipt Date: 20070925
  Transmission Date: 20090109
  Serious: No
  Sender: FDA-Public Use
  Company Number: US-AMGEN-KDL244919

PATIENT
  Sex: Female

DRUGS (4)
  1. KINERET [Suspect]
     Indication: DRUG USE FOR UNKNOWN INDICATION
     Route: 058
     Dates: start: 20020101
  2. HYDROXYCHLOROQUINE SULFATE [Concomitant]
  3. ARAVA [Concomitant]
  4. METHOTREXATE [Concomitant]
     Route: 048

REACTIONS (2)
  - JOINT RANGE OF MOTION DECREASED [None]
  - MUSCULOSKELETAL PAIN [None]
